FAERS Safety Report 19093237 (Version 1)
Quarter: 2021Q2

REPORT INFORMATION
  Report Type: Spontaneous
  Country: NL (occurrence: NL)
  Receive Date: 20210405
  Receipt Date: 20210405
  Transmission Date: 20210717
  Serious: Yes (Hospitalization)
  Sender: FDA-Public Use
  Company Number: NL-TEVA-2021-NL-1897296

PATIENT
  Age: 34 Year
  Sex: Female
  Weight: 56.6 kg

DRUGS (6)
  1. CISPLATINE INFUUS / BRAND NAME NOT SPECIFIED [Suspect]
     Active Substance: CISPLATIN
     Indication: CHOLANGIOCARCINOMA
     Dosage: 1 MG / MG (MILLIGRAM PER MILLIGRAM),UNIT DOSE:1DOSAGEFORM
     Dates: start: 20210309, end: 20210309
  2. PARACETAMOL CAPSULE 500MG / BRAND NAME NOT SPECIFIED [Concomitant]
     Dosage: 500 MG (MILLIGRAM):THERAPY START DATE:ASKED BUT UNKNOWN:THERAPY END DATE :ASKED BUT UNKNOWN
  3. DEXAMETHASON TABLET  4MG / BRAND NAME NOT SPECIFIED [Concomitant]
     Dosage: 4 MILLIGRAM DAILY;
  4. METOCLOPRAMIDE TABLET 10MG / BRAND NAME NOT SPECIFIED [Concomitant]
     Active Substance: METOCLOPRAMIDE
     Dosage: 30 MILLIGRAM DAILY; ZN:THERAPY START DATE:THERAPY END DATE:ASKU
  5. FENTANYL PLEISTER  12UG/UUR (GENERIEK+DUROGESIC) / BRAND NAME NOT SPEC [Concomitant]
     Dosage: 12 UG (MICROGRAMS) PER HOUR
  6. MACROGOL/ZOUTEN PDR V DRANK (MOVIC/MOLAX/LAXT/GEN) / MOVICOLON POEDER [Concomitant]
     Dosage: THERAPY START DATE:ASKED BUT UNKNOWN:THERAPY END DATE :ASKED BUT UNKNOWN

REACTIONS (1)
  - Renal tubular acidosis [Not Recovered/Not Resolved]

NARRATIVE: CASE EVENT DATE: 20210315
